FAERS Safety Report 25907423 (Version 1)
Quarter: 2025Q4

REPORT INFORMATION
  Report Type: Spontaneous
  Country: US (occurrence: US)
  Receive Date: 20251010
  Receipt Date: 20251010
  Transmission Date: 20260118
  Serious: Yes (Hospitalization)
  Sender: NOVO NORDISK
  Company Number: US-NOVOPROD-1534297

PATIENT
  Sex: Female
  Weight: 136.05 kg

DRUGS (1)
  1. TRESIBA [Suspect]
     Active Substance: INSULIN DEGLUDEC
     Indication: Product used for unknown indication
     Dosage: 60 TO 80 UNITS/SLIDING SCALE
     Dates: start: 202309

REACTIONS (2)
  - Dyspnoea [Not Recovered/Not Resolved]
  - Coronary artery occlusion [Not Recovered/Not Resolved]

NARRATIVE: CASE EVENT DATE: 20250801
